FAERS Safety Report 8969798 (Version 1)
Quarter: 2012Q4

REPORT INFORMATION
  Report Type: 
  Country: US (occurrence: US)
  Receive Date: 20121218
  Receipt Date: 20121218
  Transmission Date: 20130627
  Serious: Yes (Hospitalization)
  Sender: FDA-Public Use
  Company Number: US-INCYTE CORPORATION-2012IN002566

PATIENT
  Age: 78 Year
  Sex: Female

DRUGS (2)
  1. JAKAFI [Suspect]
     Indication: MYELOFIBROSIS
     Dosage: 10 mg, bid
     Route: 048
     Dates: start: 2012, end: 20121023
  2. TIKOSYN [Concomitant]

REACTIONS (2)
  - Atrial fibrillation [Unknown]
  - Anaemia [Unknown]
